FAERS Safety Report 10426672 (Version 1)
Quarter: 2014Q3

REPORT INFORMATION
  Report Type: Spontaneous
  Country: US (occurrence: US)
  Receive Date: 20140903
  Receipt Date: 20140903
  Transmission Date: 20150326
  Serious: No
  Sender: FDA-Public Use
  Company Number: US-BANPHARM-20131554

PATIENT
  Age: 61 Year
  Sex: Female
  Weight: 55.79 kg

DRUGS (2)
  1. CETIRIZINE HCL CAPSULES 10 MG [Suspect]
     Active Substance: CETIRIZINE HYDROCHLORIDE
     Indication: HYPERSENSITIVITY
     Dosage: 1 DF, QD,
     Route: 048
     Dates: start: 20130725, end: 20130728
  2. ARAMIDEX [Concomitant]

REACTIONS (1)
  - Eye swelling [Unknown]

NARRATIVE: CASE EVENT DATE: 20130728
